FAERS Safety Report 14671491 (Version 1)
Quarter: 2018Q1

REPORT INFORMATION
  Report Type: Other
  Country: NL (occurrence: NL)
  Receive Date: 20180323
  Receipt Date: 20180323
  Transmission Date: 20180509
  Serious: Yes (Other)
  Sender: FDA-Public Use
  Company Number: NL-MACLEODS PHARMACEUTICALS US LTD-MAC2018011604

PATIENT

DRUGS (1)
  1. LEVOFLOXACIN 500 MG TABLET [Suspect]
     Active Substance: LEVOFLOXACIN
     Indication: PSEUDOMONAS INFECTION
     Dosage: 500 MG,EVERY 12 HOURS
     Route: 048
     Dates: start: 20180208, end: 20180220

REACTIONS (6)
  - Toxic skin eruption [Recovering/Resolving]
  - Headache [Recovering/Resolving]
  - Erythema multiforme [Recovering/Resolving]
  - Peripheral vascular disorder [Recovering/Resolving]
  - Myalgia [Recovering/Resolving]
  - Tendonitis [Recovering/Resolving]

NARRATIVE: CASE EVENT DATE: 20180213
